FAERS Safety Report 4930500-7 (Version None)
Quarter: 2006Q1

REPORT INFORMATION
  Report Type: 
  Country: None (occurrence: None)
  Receive Date: 20060227
  Receipt Date: 20060214
  Transmission Date: 20060701
  Serious: Yes (Death, Other)
  Sender: FDA-Public Use
  Company Number: 2006-US-00685

PATIENT
  Age: 61 Year
  Sex: Female

DRUGS (1)
  1. CLOZAPINE [Suspect]
     Indication: BIPOLAR DISORDER
     Dosage: 25 MG QD ORAL
     Route: 048
     Dates: start: 20060101, end: 20060101

REACTIONS (3)
  - CONVULSION [None]
  - GASTRIC HAEMORRHAGE [None]
  - ULCER [None]
